FAERS Safety Report 16667571 (Version 2)
Quarter: 2019Q3

REPORT INFORMATION
  Report Type: Spontaneous
  Country: US (occurrence: US)
  Receive Date: 20190805
  Receipt Date: 20190812
  Transmission Date: 20191004
  Serious: Yes (Other)
  Sender: FDA-Public Use
  Company Number: US-BAYER-2019-139952

PATIENT
  Age: 5 Year
  Sex: Male

DRUGS (2)
  1. COPPERTONE KIDS SPF 50 [Suspect]
     Active Substance: OCTINOXATE\OCTISALATE\ZINC OXIDE
     Indication: THERAPEUTIC SKIN CARE TOPICAL
     Dosage: UNK
     Route: 061
     Dates: start: 20190720, end: 20190721
  2. SILVERDINE [Concomitant]
     Dosage: UNK

REACTIONS (2)
  - Sunburn [Recovered/Resolved]
  - Drug ineffective [Unknown]

NARRATIVE: CASE EVENT DATE: 20190720
